FAERS Safety Report 9008369 (Version 1)
Quarter: 2012Q4

REPORT INFORMATION
  Report Type: Spontaneous
  Country: US (occurrence: None)
  Receive Date: 20121227
  Receipt Date: 20121227
  Transmission Date: 20130627
  Serious: Yes (Other)
  Sender: FDA-Public Use
  Company Number: USA/USA/12/0027141

PATIENT
  Age: 64 Year
  Sex: Female
  Weight: 86.18 kg

DRUGS (6)
  1. FAMOTIDINE [Suspect]
     Indication: ACID REFLUX (OESOPHAGEAL)
     Route: 048
     Dates: start: 20121211
  2. WARFARIN (WARFARIN) [Concomitant]
  3. WARFARIN (WARFARIN) [Concomitant]
  4. LEXAPRO (ESCITALOPRAM OXALATE) [Concomitant]
  5. XANAX (ALPRAZOLAM) [Concomitant]
  6. ASPIRIN (ACETYLSALICYLIC ACID) [Concomitant]

REACTIONS (2)
  - International normalised ratio decreased [None]
  - Blood viscosity increased [None]
